FAERS Safety Report 6414659-0 (Version None)
Quarter: 2009Q4

REPORT INFORMATION
  Report Type: 
  Country: None (occurrence: None)
  Receive Date: 20091021
  Receipt Date: 20060327
  Transmission Date: 20100525
  Serious: Yes (Hospitalization)
  Sender: FDA-Public Use
  Company Number: 2009009335

PATIENT
  Sex: Male
  Weight: 74.8435 kg

DRUGS (1)
  1. ACTIQ [Suspect]
     Indication: RHEUMATOID ARTHRITIS
     Dosage: 16000 MCG (1600 MCG,10 IN 1 D),BU
     Route: 002

REACTIONS (6)
  - DRUG DEPENDENCE [None]
  - DRUG WITHDRAWAL SYNDROME [None]
  - INCORRECT DOSE ADMINISTERED [None]
  - INJURY [None]
  - MEDICATION ERROR [None]
  - MUSCULOSKELETAL DISORDER [None]
